FAERS Safety Report 13500585 (Version 1)
Quarter: 2017Q2

REPORT INFORMATION
  Report Type: Spontaneous
  Country: US (occurrence: US)
  Receive Date: 20170501
  Receipt Date: 20170501
  Transmission Date: 20170830
  Serious: Yes (Hospitalization)
  Sender: FDA-Public Use
  Company Number: US-VIFOR (INTERNATIONAL) INC.-VIT-2017-04625

PATIENT
  Age: 68 Year
  Sex: Female

DRUGS (28)
  1. COLECALCIFEROL [Concomitant]
     Active Substance: CHOLECALCIFEROL
  2. CITRACAL/VITAMIN D [Concomitant]
  3. BIOTIN [Concomitant]
     Active Substance: BIOTIN
  4. CELLCEPT [Concomitant]
     Active Substance: MYCOPHENOLATE MOFETIL\MYCOPHENOLATE MOFETIL HYDROCHLORIDE
  5. RETIN-A [Concomitant]
     Active Substance: TRETINOIN
  6. SODIUM BICARBONATE. [Concomitant]
     Active Substance: SODIUM BICARBONATE
  7. VITAMINS NOS [Concomitant]
     Active Substance: VITAMINS
  8. CARVEDILOL. [Concomitant]
     Active Substance: CARVEDILOL
  9. PREDNISONE. [Concomitant]
     Active Substance: PREDNISONE
  10. METOLAZONE. [Concomitant]
     Active Substance: METOLAZONE
  11. ACETYLSALICYLIC ACID [Concomitant]
     Active Substance: ASPIRIN
  12. LEVOTHYROXINE SODIUM. [Concomitant]
     Active Substance: LEVOTHYROXINE SODIUM
  13. VALIUM [Concomitant]
     Active Substance: DIAZEPAM
  14. SIMETHICONE (DIMETHICONE) [Concomitant]
     Active Substance: DIMETHICONE
  15. TUMS [Concomitant]
     Active Substance: CALCIUM CARBONATE
  16. VELTASSA [Suspect]
     Active Substance: PATIROMER
     Indication: HYPERKALAEMIA
     Route: 048
     Dates: start: 20160601
  17. FISH OIL BURP-LESS [Concomitant]
  18. CYANOCOBALAMIN. [Concomitant]
     Active Substance: CYANOCOBALAMIN
  19. PROBIOTIC AND ACIDOPHILUS EX ST [Concomitant]
  20. PROMETHAZINE HYDROCHLORIDE. [Concomitant]
     Active Substance: PROMETHAZINE HYDROCHLORIDE
  21. PARACETAMOL [Concomitant]
     Active Substance: ACETAMINOPHEN
  22. SENNOSIDE A+B [Concomitant]
     Active Substance: SENNOSIDES A AND B
  23. SODIUM POLYSTYRENE SULFONATE. [Concomitant]
     Active Substance: SODIUM POLYSTYRENE SULFONATE
  24. PROGRAF [Concomitant]
     Active Substance: TACROLIMUS\TACROLIMUS ANHYDROUS
  25. LOPERAMIDE HYDROCHLORIDE. [Concomitant]
     Active Substance: LOPERAMIDE HYDROCHLORIDE
  26. MAGNESIUM [Concomitant]
     Active Substance: MAGNESIUM
  27. ZOFRAN [Concomitant]
     Active Substance: ONDANSETRON HYDROCHLORIDE
  28. RANITIDINE HYDROCHLORIDE. [Concomitant]
     Active Substance: RANITIDINE HYDROCHLORIDE

REACTIONS (1)
  - Adverse event [Unknown]
